FAERS Safety Report 17245858 (Version 1)
Quarter: 2020Q1

REPORT INFORMATION
  Report Type: Spontaneous
  Country: GB (occurrence: GB)
  Receive Date: 20200108
  Receipt Date: 20200108
  Transmission Date: 20200409
  Serious: Yes (Hospitalization, Other)
  Sender: FDA-Public Use
  Company Number: GB-SUN PHARMACEUTICAL INDUSTRIES LTD-2019RR-232741

PATIENT
  Age: 71 Year
  Sex: Female

DRUGS (7)
  1. BISOPROLOL [Suspect]
     Active Substance: BISOPROLOL
     Indication: PRODUCT USED FOR UNKNOWN INDICATION
     Dosage: ()
     Route: 065
  2. RAMIPRIL 1.25 MG [Suspect]
     Active Substance: RAMIPRIL
     Indication: BLOOD PRESSURE MEASUREMENT
     Dosage: 1.25 IN THE MORNING AND 1.25 AT NIGHT
     Route: 065
  3. RAMIPRIL 1.25 MG [Suspect]
     Active Substance: RAMIPRIL
     Dosage: STARTED 2011/2012 ()
  4. ATORVASTATIN [Suspect]
     Active Substance: ATORVASTATIN
     Indication: BLOOD CHOLESTEROL
     Dosage: 10 MILLIGRAM, WEEKLY
     Route: 065
     Dates: start: 2011
  5. METFORMIN [Suspect]
     Active Substance: METFORMIN HYDROCHLORIDE
     Indication: PRODUCT USED FOR UNKNOWN INDICATION
     Dosage: STARTED 2011/2012 ()
     Route: 065
  6. ASPIRIN. [Suspect]
     Active Substance: ASPIRIN
     Indication: PRODUCT USED FOR UNKNOWN INDICATION
     Dosage: ()
     Route: 065
  7. ATORVASTATIN [Suspect]
     Active Substance: ATORVASTATIN
     Indication: BLOOD CHOLESTEROL
     Dosage: 20 MG, QW
     Route: 065
     Dates: start: 2011

REACTIONS (14)
  - Chest pain [Unknown]
  - Oropharyngeal pain [Unknown]
  - Malaise [Unknown]
  - Bone pain [Unknown]
  - Ear pain [Unknown]
  - Drug intolerance [Unknown]
  - Atrioventricular block [Unknown]
  - Asthenia [Unknown]
  - Fatigue [Unknown]
  - Drug hypersensitivity [Unknown]
  - Somnolence [Unknown]
  - Intentional product use issue [Unknown]
  - Generalised oedema [Unknown]
  - Arthralgia [Unknown]
